FAERS Safety Report 7408260-X (Version None)
Quarter: 2011Q2

REPORT INFORMATION
  Report Type: 
  Country: None (occurrence: None)
  Receive Date: 20110412
  Receipt Date: 20110317
  Transmission Date: 20111010
  Serious: Yes (Hospitalization, Other)
  Sender: FDA-Public Use
  Company Number: US-BAYER-2010-002817

PATIENT
  Age: 39 Year
  Sex: Female

DRUGS (9)
  1. BENICAR [Concomitant]
     Indication: HYPERTENSION
  2. YASMIN [Suspect]
     Indication: CONTRACEPTION
     Dosage: UNK
     Route: 048
     Dates: end: 20080701
  3. PROTONIX [Concomitant]
  4. SYNTHROID [Concomitant]
  5. DIOVAN [Concomitant]
     Indication: HYPERTENSION
  6. DIOVAN HCT [Concomitant]
  7. OCELLA [Suspect]
     Indication: CONTRACEPTION
     Dosage: UNK
     Dates: start: 20080901, end: 20091001
  8. HYDROCHLOROTHIAZIDE [Concomitant]
     Indication: HYPERTENSION
  9. PEPCID [Concomitant]

REACTIONS (4)
  - PAIN [None]
  - CHOLELITHIASIS [None]
  - CHOLECYSTITIS CHRONIC [None]
  - GALLBLADDER DISORDER [None]
